FAERS Safety Report 8513806-4 (Version None)
Quarter: 2012Q3

REPORT INFORMATION
  Report Type: 
  Country: None (occurrence: None)
  Receive Date: 20120717
  Receipt Date: 20120712
  Transmission Date: 20120928
  Serious: Yes (Other)
  Sender: FDA-Public Use
  Company Number: BR-US-EMD SERONO, INC.-7024506

PATIENT
  Sex: Male

DRUGS (3)
  1. REBIF [Suspect]
     Route: 058
     Dates: start: 20101201, end: 20120628
  2. REBIF [Suspect]
     Indication: RELAPSING-REMITTING MULTIPLE SCLEROSIS
     Route: 058
     Dates: start: 20100702, end: 20100901
  3. REBIF [Suspect]
     Route: 058
     Dates: start: 20100901, end: 20101025

REACTIONS (3)
  - DRUG-INDUCED LIVER INJURY [None]
  - PYREXIA [None]
  - HEADACHE [None]
